FAERS Safety Report 6854946-5 (Version None)
Quarter: 2010Q3

REPORT INFORMATION
  Report Type: 
  Country: None (occurrence: None)
  Receive Date: 20100717
  Receipt Date: 20080402
  Transmission Date: 20110219
  Serious: Yes (Other)
  Sender: FDA-Public Use
  Company Number: US-PFIZER INC-2007096608

PATIENT
  Sex: Female
  Weight: 52.7 kg

DRUGS (3)
  1. CHANTIX [Suspect]
     Indication: SMOKING CESSATION THERAPY
     Dates: start: 20070101, end: 20071109
  2. DILANTIN [Concomitant]
  3. VITAMINS [Concomitant]

REACTIONS (5)
  - ASTHENIA [None]
  - NAUSEA [None]
  - PAIN [None]
  - VOMITING [None]
  - WEIGHT DECREASED [None]
